FAERS Safety Report 6092718-2 (Version None)
Quarter: 2009Q1

REPORT INFORMATION
  Report Type: 
  Country: None (occurrence: None)
  Receive Date: 20090225
  Receipt Date: 20090223
  Transmission Date: 20090719
  Serious: Yes (Death, Hospitalization)
  Sender: FDA-Public Use
  Company Number: CZ-BRISTOL-MYERS SQUIBB COMPANY-14515704

PATIENT
  Age: 65 Year
  Sex: Female

DRUGS (3)
  1. ABILIFY [Suspect]
     Route: 048
     Dates: start: 20080901
  2. ABILIFY [Suspect]
     Indication: PSYCHOTIC DISORDER
     Dosage: 7 INJECTIONS
     Route: 030
  3. VALPROATE SODIUM [Suspect]

REACTIONS (3)
  - ANXIETY [None]
  - COMPLETED SUICIDE [None]
  - PSYCHOTIC DISORDER [None]
